FAERS Safety Report 12972141 (Version 3)
Quarter: 2018Q4

REPORT INFORMATION
  Report Type: Spontaneous
  Country: DE (occurrence: DE)
  Receive Date: 20161124
  Receipt Date: 20181004
  Transmission Date: 20190204
  Serious: Yes (Hospitalization, Other)
  Sender: FDA-Public Use
  Company Number: DE-AUROBINDO-AUR-APL-2015-08508

PATIENT
  Age: 40 Year
  Sex: Male

DRUGS (1)
  1. SERTRALINE [Suspect]
     Active Substance: SERTRALINE HYDROCHLORIDE
     Indication: PANIC ATTACK
     Dosage: 50 MG, DAILY
     Route: 065

REACTIONS (9)
  - Palpitations [Unknown]
  - Circulatory collapse [Recovered/Resolved]
  - Fall [Unknown]
  - Unresponsive to stimuli [Unknown]
  - Dizziness [Unknown]
  - Suicidal ideation [Unknown]
  - Drug withdrawal syndrome [Unknown]
  - Syncope [Unknown]
  - Hyperhidrosis [Unknown]
